FAERS Safety Report 8144087-1 (Version None)
Quarter: 2012Q1

REPORT INFORMATION
  Report Type: 
  Country: None (occurrence: None)
  Receive Date: 20120217
  Receipt Date: 20120209
  Transmission Date: 20120608
  Serious: Yes (Hospitalization, Other)
  Sender: FDA-Public Use
  Company Number: US-SANOFI-AVENTIS-2012SA008961

PATIENT
  Age: 83 Year
  Sex: Female
  Weight: 79.4 kg

DRUGS (7)
  1. PLAVIX [Suspect]
     Route: 048
     Dates: start: 20100101
  2. DIGOXIN [Concomitant]
  3. THYROID THERAPY [Concomitant]
  4. LISINOPRIL [Concomitant]
  5. CRESTOR [Concomitant]
  6. PROTONIX [Concomitant]
  7. SPIRONOLACTONE [Concomitant]

REACTIONS (6)
  - CONTUSION [None]
  - RETINAL DISORDER [None]
  - DIZZINESS [None]
  - CONDITION AGGRAVATED [None]
  - FALL [None]
  - VISUAL IMPAIRMENT [None]
